FAERS Safety Report 17680869 (Version 1)
Quarter: 2020Q2

REPORT INFORMATION
  Report Type: Spontaneous
  Country: US (occurrence: US)
  Receive Date: 20200417
  Receipt Date: 20200417
  Transmission Date: 20200714
  Serious: No
  Sender: FDA-Public Use
  Company Number: None

PATIENT
  Age: 46 Year
  Sex: Male

DRUGS (2)
  1. ALBUTEROL (ALBUTEROL SO4 90MCG/ACTUAT (CFC-F) INHL, ORAL, 18GM) [Suspect]
     Active Substance: ALBUTEROL SULFATE
     Indication: DYSPNOEA
     Dosage: ?          OTHER STRENGTH:90MCG, 19GM;?
     Route: 048
     Dates: start: 20190611, end: 20190611
  2. IPRATROPIUM (IPRATROPIUM BR 0.2% SOLN, INHL, 2.5ML) [Suspect]
     Active Substance: IPRATROPIUM BROMIDE
     Indication: DYSPNOEA
     Dosage: ?          OTHER STRENGTH:0.2%, 2.5ML;?
     Dates: start: 20190611, end: 20190611

REACTIONS (6)
  - Urticaria [None]
  - Dyspnoea [None]
  - Respiratory distress [None]
  - Hypotension [None]
  - Hypersensitivity [None]
  - Chest discomfort [None]

NARRATIVE: CASE EVENT DATE: 20190612
